FAERS Safety Report 22049692 (Version 1)
Quarter: 2023Q1

REPORT INFORMATION
  Report Type: Spontaneous
  Country: US (occurrence: None)
  Receive Date: 20230228
  Receipt Date: 20230228
  Transmission Date: 20230417
  Serious: Yes (Other)
  Sender: FDA-Public Use
  Company Number: None

PATIENT
  Age: 41 Year
  Sex: Female
  Weight: 75.6 kg

DRUGS (4)
  1. TRINTELLIX [Suspect]
     Active Substance: VORTIOXETINE HYDROBROMIDE
     Indication: Depression
     Dosage: OTHER QUANTITY : 1 CAPSULE(S);?FREQUENCY : DAILY;?
     Route: 048
     Dates: start: 20230213, end: 20230221
  2. VITAMIN D [Concomitant]
     Active Substance: VITAMIN D NOS
  3. ADDERALL [Concomitant]
  4. VITAMIN C [Concomitant]
     Active Substance: ASCORBIC ACID

REACTIONS (6)
  - Rash [None]
  - Rash [None]
  - Rash [None]
  - Rash erythematous [None]
  - Rash pruritic [None]
  - Burning sensation [None]

NARRATIVE: CASE EVENT DATE: 20230217
